FAERS Safety Report 14650288 (Version 1)
Quarter: 2018Q1

REPORT INFORMATION
  Report Type: Spontaneous
  Country: IT (occurrence: IT)
  Receive Date: 20180316
  Receipt Date: 20180316
  Transmission Date: 20180509
  Serious: Yes (Life-Threatening, Hospitalization, Other)
  Sender: FDA-Public Use
  Company Number: IT-SHIRE-IT201733387

PATIENT

DRUGS (21)
  1. GLIVEC [Suspect]
     Active Substance: IMATINIB MESYLATE
     Indication: ACUTE LYMPHOCYTIC LEUKAEMIA
     Dosage: 300 MG, QD
     Route: 048
     Dates: start: 20120327, end: 20120402
  2. RANITIDINE, RANITIDINE HYDROCHLORIDE [Suspect]
     Active Substance: RANITIDINE HYDROCHLORIDE
     Indication: PRODUCT USED FOR UNKNOWN INDICATION
     Dosage: 300 MG, QD
     Route: 048
     Dates: start: 20120327
  3. CYCLOPHOSPHAMIDE. [Concomitant]
     Active Substance: CYCLOPHOSPHAMIDE
     Indication: PRODUCT USED FOR UNKNOWN INDICATION
  4. PREDNISONE. [Suspect]
     Active Substance: PREDNISONE
     Indication: PRODUCT USED FOR UNKNOWN INDICATION
     Dosage: 80 MG, QD
     Route: 048
  5. GLIVEC [Suspect]
     Active Substance: IMATINIB MESYLATE
     Dosage: 100 MG, QD
     Route: 048
     Dates: start: 20120829, end: 20121027
  6. DESAMETASONE [Suspect]
     Active Substance: DEXAMETHASONE
     Indication: PRODUCT USED FOR UNKNOWN INDICATION
     Dosage: 2.5 MG, QD
     Route: 048
     Dates: start: 20121219
  7. ATG [Concomitant]
     Active Substance: LAPINE T-LYMPHOCYTE IMMUNE GLOBULIN
     Dosage: 3.5 MG/KG, BID
     Route: 065
     Dates: start: 20120824, end: 20120826
  8. TB1 [Concomitant]
     Indication: PRODUCT USED FOR UNKNOWN INDICATION
  9. GLIVEC [Suspect]
     Active Substance: IMATINIB MESYLATE
     Dosage: 300 MG, QD
     Route: 048
     Dates: start: 20120508, end: 20120527
  10. FENOBARBITAL [Concomitant]
     Active Substance: PHENOBARBITAL
     Indication: NERVOUS SYSTEM DISORDER
     Dosage: UNK
     Route: 065
  11. PEGASPARGASE [Suspect]
     Active Substance: PEGASPARGASE
     Indication: PRODUCT USED FOR UNKNOWN INDICATION
     Dosage: 3400UI/DOSE
     Route: 048
     Dates: start: 20120331
  12. FENOFIBRATE. [Suspect]
     Active Substance: FENOFIBRATE
     Indication: PRODUCT USED FOR UNKNOWN INDICATION
     Dosage: 100 MG, QD
     Route: 048
     Dates: start: 20121219
  13. GLIVEC [Suspect]
     Active Substance: IMATINIB MESYLATE
     Dosage: 400 MG, QD
     Route: 048
     Dates: start: 20120624, end: 20120706
  14. GLIVEC [Suspect]
     Active Substance: IMATINIB MESYLATE
     Dosage: 400 MG, QD
     Route: 048
     Dates: start: 20120604, end: 20120617
  15. ATG [Concomitant]
     Active Substance: LAPINE T-LYMPHOCYTE IMMUNE GLOBULIN
     Indication: PROPHYLAXIS
     Dosage: UNK
  16. FENOBARBITAL [Concomitant]
     Active Substance: PHENOBARBITAL
     Dosage: UNK
     Route: 065
     Dates: end: 20130125
  17. PREDNISONE. [Suspect]
     Active Substance: PREDNISONE
  18. GLIVEC [Suspect]
     Active Substance: IMATINIB MESYLATE
     Dosage: 300 MG, QD
     Route: 048
     Dates: start: 20120801, end: 20120804
  19. RANITIDINE. [Suspect]
     Active Substance: RANITIDINE
     Indication: PRODUCT USED FOR UNKNOWN INDICATION
     Dosage: 300 MG, QD
     Route: 048
     Dates: start: 20120327
  20. PEGASPARGASE [Suspect]
     Active Substance: PEGASPARGASE
     Dosage: 100 MG, 1X/DAY:QD
     Route: 048
     Dates: start: 20171219
  21. THIOTEPA. [Concomitant]
     Active Substance: THIOTEPA
     Indication: PRODUCT USED FOR UNKNOWN INDICATION

REACTIONS (18)
  - Respiratory failure [Recovered/Resolved]
  - Escherichia urinary tract infection [Recovered/Resolved]
  - Febrile neutropenia [Recovered/Resolved]
  - Left ventricular dysfunction [Recovered/Resolved]
  - Hepatotoxicity [Recovered/Resolved]
  - Mucosal inflammation [Recovered/Resolved]
  - Blister [Recovered/Resolved]
  - Hypokinesia [Recovered/Resolved]
  - Acute kidney injury [Recovered/Resolved]
  - Aplasia [Recovered/Resolved]
  - Pain [Unknown]
  - Visual impairment [Recovered/Resolved]
  - Bone marrow failure [Recovered/Resolved]
  - Mitral valve disease [Recovered/Resolved]
  - Pyrexia [Recovered/Resolved]
  - Herpes zoster [Recovered/Resolved]
  - Dizziness [Recovered/Resolved]
  - Rash erythematous [Recovered/Resolved]

NARRATIVE: CASE EVENT DATE: 20120401
